FAERS Safety Report 9867438 (Version 1)
Quarter: 2014Q1

REPORT INFORMATION
  Report Type: Spontaneous
  Country: IN (occurrence: IN)
  Receive Date: 20140204
  Receipt Date: 20140204
  Transmission Date: 20141002
  Serious: Yes (Other)
  Sender: FDA-Public Use
  Company Number: IN-MERCK-1402IND000918

PATIENT
  Age: 60 Year
  Sex: 0

DRUGS (1)
  1. JANUVIA [Suspect]
     Dosage: 1 DF, UNK
     Route: 048

REACTIONS (2)
  - Renal disorder [Recovering/Resolving]
  - Local swelling [Recovering/Resolving]
